FAERS Safety Report 9471149 (Version 3)
Quarter: 2013Q3

REPORT INFORMATION
  Report Type: Report from Study
  Country: NL (occurrence: NL)
  Receive Date: 20130822
  Receipt Date: 20130905
  Transmission Date: 20140515
  Serious: Yes (Hospitalization)
  Sender: FDA-Public Use
  Company Number: PHHY2013NL088618

PATIENT
  Sex: Male

DRUGS (4)
  1. ZOMETA [Suspect]
     Indication: PROSTATE CANCER METASTATIC
     Dosage: 04 MG, PER 100 ML PER 4 WEEKS
     Route: 041
  2. ZOMETA [Suspect]
     Dosage: 04 MG, PER 100 ML PER 4 WEEKS
     Route: 041
     Dates: start: 20120620
  3. ZOMETA [Suspect]
     Dosage: 04 MG, PER 100 ML PER 4 WEEKS
     Route: 041
     Dates: start: 20130718
  4. ZOMETA [Suspect]
     Dosage: 04 MG, PER 100 ML PER 4 WEEKS
     Route: 041
     Dates: start: 20130815

REACTIONS (4)
  - Prostatic haemorrhage [Recovered/Resolved]
  - Haemoglobin decreased [Not Recovered/Not Resolved]
  - Penile oedema [Not Recovered/Not Resolved]
  - Oedema peripheral [Not Recovered/Not Resolved]
